FAERS Safety Report 17488686 (Version 2)
Quarter: 2020Q2

REPORT INFORMATION
  Report Type: Report from Study
  Country: US (occurrence: US)
  Receive Date: 20200303
  Receipt Date: 20200410
  Transmission Date: 20200713
  Serious: No
  Sender: FDA-Public Use
  Company Number: NVSC2020US060740

PATIENT
  Sex: Female

DRUGS (2)
  1. PIQRAY [Suspect]
     Active Substance: ALPELISIB
     Indication: PRODUCT USED FOR UNKNOWN INDICATION
     Route: 048
  2. PIQRAY [Suspect]
     Active Substance: ALPELISIB
     Route: 048

REACTIONS (12)
  - Malaise [Unknown]
  - Pyrexia [Unknown]
  - Dry mouth [Unknown]
  - Nausea [Unknown]
  - Fatigue [Unknown]
  - Pollakiuria [Unknown]
  - Dizziness [Unknown]
  - Weight decreased [Unknown]
  - Feeling abnormal [Unknown]
  - Decreased appetite [Unknown]
  - Erythema [Unknown]
  - Somnolence [Unknown]
